FAERS Safety Report 6354826-8 (Version None)
Quarter: 2009Q3

REPORT INFORMATION
  Report Type: 
  Country: None (occurrence: None)
  Receive Date: 20090914
  Receipt Date: 20090908
  Transmission Date: 20100115
  Serious: No
  Sender: FDA-Public Use
  Company Number: US-JNJFOC-20090903144

PATIENT
  Sex: Female
  Weight: 55.79 kg

DRUGS (6)
  1. FENTANYL TRANSDERMAL SYSTEM [Suspect]
     Indication: BACK PAIN
     Route: 062
  2. NEURONTIN [Concomitant]
     Indication: PAIN
     Route: 048
  3. OMEPRAZOLE [Concomitant]
     Indication: GASTROOESOPHAGEAL REFLUX DISEASE
     Route: 048
  4. TRAZODONE [Concomitant]
     Indication: SLEEP DISORDER
     Route: 048
  5. SEROQUEL [Concomitant]
     Indication: PSYCHOTIC DISORDER
     Route: 048
  6. KLONOPIN [Concomitant]
     Indication: PANIC ATTACK
     Route: 048

REACTIONS (4)
  - INAPPROPRIATE SCHEDULE OF DRUG ADMINISTRATION [None]
  - PAIN [None]
  - SOMNOLENCE [None]
  - TREATMENT NONCOMPLIANCE [None]
